FAERS Safety Report 13336515 (Version 1)
Quarter: 2017Q1

REPORT INFORMATION
  Report Type: Spontaneous
  Country: US (occurrence: US)
  Receive Date: 20170314
  Receipt Date: 20170314
  Transmission Date: 20170428
  Serious: No
  Sender: FDA-Public Use
  Company Number: US-JAZZ-2017-US-001684

PATIENT
  Sex: Female

DRUGS (33)
  1. METHYLPHENIDATE. [Concomitant]
     Active Substance: METHYLPHENIDATE
  2. ZYRTEC [Concomitant]
     Active Substance: CETIRIZINE HYDROCHLORIDE
  3. ALBUTEROL SULFATE. [Concomitant]
     Active Substance: ALBUTEROL SULFATE
  4. TRAMADOL HCL [Concomitant]
     Active Substance: TRAMADOL HYDROCHLORIDE
  5. NAPROXEN. [Concomitant]
     Active Substance: NAPROXEN
  6. PROGESTERONE. [Concomitant]
     Active Substance: PROGESTERONE
  7. ESTROGEN [Concomitant]
  8. NUVIGIL [Concomitant]
     Active Substance: ARMODAFINIL
  9. XYREM [Suspect]
     Active Substance: SODIUM OXYBATE
     Dosage: 3 G, BID
     Route: 048
     Dates: start: 200712, end: 2008
  10. XYREM [Suspect]
     Active Substance: SODIUM OXYBATE
     Dosage: 4.5 G, BID
     Route: 048
     Dates: start: 200802
  11. TYLENOL WITH CODEINE [Concomitant]
     Active Substance: ACETAMINOPHEN\CODEINE PHOSPHATE
  12. FLUTICASONE PROPIONATE. [Concomitant]
     Active Substance: FLUTICASONE PROPIONATE
  13. OMEPRAZOLE. [Concomitant]
     Active Substance: OMEPRAZOLE
  14. AMITRIPTYLINE HCL [Concomitant]
     Active Substance: AMITRIPTYLINE
  15. FEXOFENADINE HCL [Concomitant]
     Active Substance: FEXOFENADINE HYDROCHLORIDE
  16. CALCIUM/VITAMIN D                  /01204201/ [Concomitant]
     Active Substance: CALCIUM CARBONATE\ERGOCALCIFEROL
  17. IBUPROFEN. [Concomitant]
     Active Substance: IBUPROFEN
  18. XYREM [Suspect]
     Active Substance: SODIUM OXYBATE
     Indication: NARCOLEPSY
     Dosage: 2.25 G, BID
     Route: 048
     Dates: start: 200711, end: 2007
  19. FISH OIL [Concomitant]
     Active Substance: FISH OIL
  20. MELOXICAM. [Concomitant]
     Active Substance: MELOXICAM
  21. BACTRIM DS [Concomitant]
     Active Substance: SULFAMETHOXAZOLE\TRIMETHOPRIM
  22. AZITHROMYCIN ANHYDROUS. [Concomitant]
     Active Substance: AZITHROMYCIN ANHYDROUS
  23. TESSALON [Concomitant]
     Active Substance: BENZONATATE
  24. NABUMETONE. [Concomitant]
     Active Substance: NABUMETONE
  25. LEXAPRO [Concomitant]
     Active Substance: ESCITALOPRAM OXALATE
  26. VITAMIN C [Concomitant]
     Active Substance: ASCORBIC ACID
  27. THEANINE [Concomitant]
     Active Substance: THEANINE
  28. MAGNESIUM GLYCINATE [Concomitant]
     Active Substance: MAGNESIUM GLYCINATE
  29. ALPRAZOLAM. [Concomitant]
     Active Substance: ALPRAZOLAM
  30. ERRIN                              /00020901/ [Concomitant]
  31. PREDNISONE. [Concomitant]
     Active Substance: PREDNISONE
  32. TRIAMCINOLONE [Concomitant]
     Active Substance: TRIAMCINOLONE
  33. VITAMIN D3 [Concomitant]
     Active Substance: CHOLECALCIFEROL

REACTIONS (1)
  - Uterine leiomyoma [Not Recovered/Not Resolved]
